FAERS Safety Report 22996838 (Version 11)
Quarter: 2024Q4

REPORT INFORMATION
  Report Type: Spontaneous
  Country: US (occurrence: US)
  Receive Date: 20230928
  Receipt Date: 20241008
  Transmission Date: 20250115
  Serious: No
  Sender: BIOGEN
  Company Number: US-BIOGEN-2023BI01226767

PATIENT
  Age: 64 Year
  Sex: Female

DRUGS (3)
  1. TYSABRI [Suspect]
     Active Substance: NATALIZUMAB
     Indication: Multiple sclerosis
     Route: 050
     Dates: start: 20231205, end: 20240130
  2. TYSABRI [Suspect]
     Active Substance: NATALIZUMAB
     Route: 050
     Dates: start: 20180522, end: 20220114
  3. TYSABRI [Suspect]
     Active Substance: NATALIZUMAB
     Route: 050
     Dates: start: 20220303, end: 20240708

REACTIONS (18)
  - Mobility decreased [Not Recovered/Not Resolved]
  - Bipolar disorder [Not Recovered/Not Resolved]
  - Multiple sclerosis relapse [Not Recovered/Not Resolved]
  - Gait disturbance [Unknown]
  - Memory impairment [Unknown]
  - Decreased immune responsiveness [Unknown]
  - Cough [Unknown]
  - Nasal congestion [Unknown]
  - Neurological symptom [Unknown]
  - Hemihypoaesthesia [Unknown]
  - Nasopharyngitis [Unknown]
  - Influenza like illness [Unknown]
  - Dysstasia [Unknown]
  - Nervous system disorder [Unknown]
  - Visual impairment [Unknown]
  - Malaise [Unknown]
  - Fall [Recovered/Resolved]
  - Somnolence [Unknown]

NARRATIVE: CASE EVENT DATE: 20230901
